FAERS Safety Report 4982230-3 (Version None)
Quarter: 2006Q2

REPORT INFORMATION
  Report Type: 
  Country: None (occurrence: None)
  Receive Date: 20060425
  Receipt Date: 20060303
  Transmission Date: 20061013
  Serious: Yes (Death, Hospitalization)
  Sender: FDA-Public Use
  Company Number: JP-AVENTIS-200610717JP

PATIENT
  Age: 62 Year
  Sex: Male
  Weight: 80 kg

DRUGS (11)
  1. AMARYL [Suspect]
     Route: 048
     Dates: start: 20040928, end: 20041124
  2. AMARYL [Suspect]
     Route: 048
     Dates: start: 20041125, end: 20060301
  3. BASEN [Concomitant]
     Route: 048
     Dates: start: 20051229, end: 20060301
  4. ASPARA [Concomitant]
  5. URSO [Concomitant]
     Route: 048
     Dates: end: 20060301
  6. TORSEMIDE [Concomitant]
     Route: 048
     Dates: end: 20060301
  7. BUFFERIN [Concomitant]
     Route: 048
     Dates: end: 20060301
  8. BUFFERIN [Concomitant]
     Indication: ATRIAL FIBRILLATION
     Route: 048
     Dates: end: 20060301
  9. DIGOXIN [Concomitant]
     Route: 048
     Dates: end: 20060301
  10. ALDACTONE [Concomitant]
     Route: 048
     Dates: end: 20060301
  11. NU-LOTAN [Concomitant]
     Indication: HYPERTENSION
     Route: 048
     Dates: end: 20060301

REACTIONS (5)
  - GENERAL PHYSICAL HEALTH DETERIORATION [None]
  - HEPATIC FUNCTION ABNORMAL [None]
  - HYPOGLYCAEMIC COMA [None]
  - NASOPHARYNGITIS [None]
  - RENAL IMPAIRMENT [None]
